FAERS Safety Report 13737616 (Version 1)
Quarter: 2017Q3

REPORT INFORMATION
  Report Type: Spontaneous
  Country: US (occurrence: US)
  Receive Date: 20170710
  Receipt Date: 20170710
  Transmission Date: 20171127
  Serious: Yes (Other)
  Sender: FDA-Public Use
  Company Number: US-SAOL THERAPEUTICS-2016SAO01063

PATIENT
  Age: 6 Year
  Sex: Male
  Weight: 25.5 kg

DRUGS (11)
  1. FLUTICASONE. [Concomitant]
     Active Substance: FLUTICASONE
  2. KEPPRA [Concomitant]
     Active Substance: LEVETIRACETAM
  3. LIORESAL [Suspect]
     Active Substance: BACLOFEN
     Indication: CEREBRAL PALSY
     Dosage: 250 ?G, \DAY
     Dates: start: 20161108
  4. ALBUTEROL. [Concomitant]
     Active Substance: ALBUTEROL
  5. LIORESAL [Suspect]
     Active Substance: BACLOFEN
     Indication: CEREBRAL PALSY
  6. OXYCODONE [Concomitant]
     Active Substance: OXYCODONE
  7. ZONISAMIDE. [Concomitant]
     Active Substance: ZONISAMIDE
  8. OMEPRAZOLE. [Concomitant]
     Active Substance: OMEPRAZOLE
  9. CLONAZEPAM. [Concomitant]
     Active Substance: CLONAZEPAM
  10. LIORESAL [Suspect]
     Active Substance: BACLOFEN
     Indication: MUSCLE SPASTICITY
     Dosage: 275 ?G, \DAY
     Dates: start: 20161108
  11. LIORESAL [Suspect]
     Active Substance: BACLOFEN
     Indication: MUSCLE SPASTICITY
     Dosage: UNK
     Dates: start: 20161006, end: 20161108

REACTIONS (6)
  - Irritability [Unknown]
  - Drug withdrawal syndrome [Unknown]
  - Underdose [Unknown]
  - Hypertonia [Unknown]
  - Tremor [Unknown]
  - Muscle twitching [Unknown]

NARRATIVE: CASE EVENT DATE: 2016
